FAERS Safety Report 8449724-X (Version None)
Quarter: 2012Q2

REPORT INFORMATION
  Report Type: 
  Country: None (occurrence: None)
  Receive Date: 20120620
  Receipt Date: 20120615
  Transmission Date: 20120825
  Serious: No
  Sender: FDA-Public Use
  Company Number: US-PFIZER INC-2011257007

PATIENT
  Sex: Female

DRUGS (1)
  1. XALKORI [Suspect]
     Indication: TRACHEAL CANCER
     Dosage: 250 MG, 2X/DAY
     Dates: start: 20111010

REACTIONS (4)
  - NAUSEA [None]
  - FATIGUE [None]
  - VISUAL IMPAIRMENT [None]
  - CONSTIPATION [None]
